FAERS Safety Report 8510607-8 (Version None)
Quarter: 2012Q3

REPORT INFORMATION
  Report Type: 
  Country: None (occurrence: None)
  Receive Date: 20120716
  Receipt Date: 20120705
  Transmission Date: 20120928
  Serious: Yes (Hospitalization)
  Sender: FDA-Public Use
  Company Number: BE-BIOGENIDEC-2012BI025022

PATIENT
  Age: 40 Year
  Sex: Female

DRUGS (3)
  1. REDOMEX [Concomitant]
  2. AVONEX [Suspect]
     Indication: RELAPSING-REMITTING MULTIPLE SCLEROSIS
     Route: 030
     Dates: start: 20110705, end: 20110713
  3. CYMBALTA [Concomitant]

REACTIONS (2)
  - SYNCOPE [None]
  - MUSCULOSKELETAL STIFFNESS [None]
